FAERS Safety Report 23219293 (Version 4)
Quarter: 2024Q4

REPORT INFORMATION
  Report Type: Report from Study
  Country: CA (occurrence: CA)
  Receive Date: 20231122
  Receipt Date: 20241121
  Transmission Date: 20250115
  Serious: Yes (Other)
  Sender: TAKEDA
  Company Number: CA-TAKEDA-2023TUS081828

PATIENT
  Age: 73 Year
  Sex: Female

DRUGS (9)
  1. HUMAN IMMUNOGLOBULIN G [Suspect]
     Active Substance: HUMAN IMMUNOGLOBULIN G
     Indication: Plasma cell myeloma
     Dosage: 10 GRAM, 1/WEEK
     Dates: start: 20230817
  2. HUMAN IMMUNOGLOBULIN G [Suspect]
     Active Substance: HUMAN IMMUNOGLOBULIN G
     Dosage: 10 GRAM, 1/WEEK
  3. HUMAN IMMUNOGLOBULIN G [Suspect]
     Active Substance: HUMAN IMMUNOGLOBULIN G
     Dosage: 12 GRAM, 1/WEEK
  4. HUMAN IMMUNOGLOBULIN G [Suspect]
     Active Substance: HUMAN IMMUNOGLOBULIN G
     Dosage: UNK UNK, 1/WEEK
  5. MAGNESIUM [Concomitant]
     Active Substance: MAGNESIUM
     Dosage: UNK
  6. OMEGA 3 [Concomitant]
     Active Substance: CAPSAICIN
     Dosage: UNK
  7. XARELTO [Concomitant]
     Active Substance: RIVAROXABAN
     Dosage: UNK
  8. VITAMIN D [Concomitant]
     Active Substance: VITAMIN D NOS
     Dosage: UNK
  9. ZINC [Concomitant]
     Active Substance: ZINC
     Dosage: UNK

REACTIONS (6)
  - Knee arthroplasty [Unknown]
  - Blood immunoglobulin G decreased [Unknown]
  - Off label use [Unknown]
  - Product packaging quantity issue [Unknown]
  - Blood pressure increased [Unknown]
  - Fatigue [Unknown]

NARRATIVE: CASE EVENT DATE: 20230817
